FAERS Safety Report 7708029-2 (Version None)
Quarter: 2011Q3

REPORT INFORMATION
  Report Type: 
  Country: None (occurrence: None)
  Receive Date: 20110824
  Receipt Date: 20110811
  Transmission Date: 20111222
  Serious: Yes (Other)
  Sender: FDA-Public Use
  Company Number: ES-MYLANLABS-2011S1016861

PATIENT
  Age: 64 Year
  Sex: Female

DRUGS (6)
  1. DEXAMETHASONE [Concomitant]
     Indication: PREMEDICATION
     Dosage: 20MG
     Route: 042
  2. LEUCOVORIN CALCIUM [Concomitant]
     Indication: COLON CANCER METASTATIC
     Dosage: 200 MG/M2 EVERY 2 WEEKS
     Route: 042
  3. GRANISETRON [Concomitant]
     Indication: PREMEDICATION
     Dosage: 1MG
     Route: 042
  4. FLUOROURACIL [Suspect]
     Indication: COLON CANCER METASTATIC
     Dosage: FOLLOWED BY 2400 MG/M2 CONTINUOUS INFUSION OVER 48H, EVERY 2 WEEKS
     Route: 040
  5. OXALIPLATIN [Concomitant]
     Indication: COLON CANCER METASTATIC
     Dosage: 85 MG/M2 EVERY 2 WEEKS
     Route: 042
  6. FLUOROURACIL [Suspect]
     Dosage: 2400 MG/M2 OVER 48H, EVERY 2 WEEKS
     Route: 041

REACTIONS (3)
  - TACHYCARDIA [None]
  - ANGINA PECTORIS [None]
  - CUTANEOUS LUPUS ERYTHEMATOSUS [None]
